FAERS Safety Report 22161816 (Version 3)
Quarter: 2023Q2

REPORT INFORMATION
  Report Type: Report from Study
  Country: US (occurrence: US)
  Receive Date: 20230331
  Receipt Date: 20230418
  Transmission Date: 20230722
  Serious: Yes (Other)
  Sender: FDA-Public Use
  Company Number: US-002147023-NVSC2023US069890

PATIENT
  Sex: Female

DRUGS (11)
  1. COSENTYX [Suspect]
     Active Substance: SECUKINUMAB
     Indication: Psoriasis
     Dosage: UNK
     Route: 065
  2. CLOBETASOL [Suspect]
     Active Substance: CLOBETASOL
     Indication: Psoriasis
     Dosage: UNK
     Route: 065
  3. TRIAMCINOLONE [Suspect]
     Active Substance: TRIAMCINOLONE
     Indication: Psoriasis
     Dosage: UNK
     Route: 065
  4. ESTRADIOL [Suspect]
     Active Substance: ESTRADIOL
     Indication: Psoriasis
     Dosage: UNK
     Route: 065
  5. BETAMETHASONE [Suspect]
     Active Substance: BETAMETHASONE
     Indication: Psoriasis
     Dosage: UNK
     Route: 065
  6. HYDROXYZINE HYDROCHLORIDE [Suspect]
     Active Substance: HYDROXYZINE HYDROCHLORIDE
     Indication: Psoriasis
     Dosage: UNK
     Route: 065
  7. POTASSIUM [Suspect]
     Active Substance: POTASSIUM
     Indication: Psoriasis
     Dosage: UNK
     Route: 065
  8. FOLIC ACID [Suspect]
     Active Substance: FOLIC ACID
     Indication: Psoriasis
     Dosage: UNK
     Route: 065
  9. VISTARIL [Suspect]
     Active Substance: HYDROXYZINE PAMOATE
     Indication: Product used for unknown indication
     Dosage: UNK
     Route: 065
  10. PREMARIN [Suspect]
     Active Substance: ESTROGENS, CONJUGATED
     Indication: Product used for unknown indication
     Dosage: UNK
     Route: 065
  11. PRILOSEC [Suspect]
     Active Substance: OMEPRAZOLE MAGNESIUM
     Indication: Product used for unknown indication
     Dosage: UNK
     Route: 065

REACTIONS (3)
  - Psoriatic arthropathy [Unknown]
  - Psoriasis [Unknown]
  - Treatment failure [Unknown]
